FAERS Safety Report 24045192 (Version 2)
Quarter: 2024Q3

REPORT INFORMATION
  Report Type: Spontaneous
  Country: BE (occurrence: BE)
  Receive Date: 20240703
  Receipt Date: 20240705
  Transmission Date: 20241017
  Serious: Yes (Hospitalization)
  Sender: PFIZER
  Company Number: BE-MLMSERVICE-20240624-PI111360-00270-1

PATIENT
  Age: 75 Year
  Sex: Male

DRUGS (3)
  1. METHYLPREDNISOLONE [Suspect]
     Active Substance: METHYLPREDNISOLONE
     Indication: Polymyalgia rheumatica
     Dosage: 16 MG, 1X/DAY
  2. METHOTREXATE SODIUM [Suspect]
     Active Substance: METHOTREXATE SODIUM
     Indication: Polymyalgia rheumatica
     Dosage: 10 MG, WEEKLY, INTRODUCED 2 MONTHS BEFORE HIS ADMISSION
  3. CYCLOSPORINE [Concomitant]
     Active Substance: CYCLOSPORINE
     Indication: Amegakaryocytic thrombocytopenia
     Dosage: UNK, MORE THAN 10 YEARS AGO

REACTIONS (6)
  - Nocardiosis [Recovering/Resolving]
  - Cerebral nocardiosis [Recovering/Resolving]
  - Spinal cord abscess [Recovering/Resolving]
  - Scrotal abscess [Recovering/Resolving]
  - Orchitis [Recovering/Resolving]
  - Off label use [Unknown]
